FAERS Safety Report 14958526 (Version 1)
Quarter: 2018Q2

REPORT INFORMATION
  Report Type: Spontaneous
  Country: FR (occurrence: FR)
  Receive Date: 20180531
  Receipt Date: 20180531
  Transmission Date: 20180711
  Serious: Yes (Hospitalization)
  Sender: FDA-Public Use
  Company Number: FR-AUROBINDO-AUR-APL-2018-028660

PATIENT
  Age: 20 Year
  Sex: Male
  Weight: 60 kg

DRUGS (4)
  1. PARACETAMOL [Suspect]
     Active Substance: ACETAMINOPHEN
     Indication: POISONING DELIBERATE
     Dosage: 55 GRAM, IN TOTAL
     Route: 048
     Dates: start: 20180508, end: 20180508
  2. SPASFON                            /00765801/ [Suspect]
     Active Substance: PHLOROGLUCINOL\1,3,5-TRIMETHOXYBENZENE
     Indication: POISONING DELIBERATE
     Dosage: 100 MILLIGRAM, IN TOTAL
     Route: 048
     Dates: start: 20180508, end: 20180508
  3. VOGALENE [Suspect]
     Active Substance: METOPIMAZINE
     Indication: POISONING DELIBERATE
     Dosage: 60 MILLIGRAM, IN TOTAL
     Route: 048
     Dates: start: 20180508, end: 20180508
  4. AMOXICILLIN. [Suspect]
     Active Substance: AMOXICILLIN
     Indication: POISONING DELIBERATE
     Dosage: 6 GRAM, IN TOTAL
     Route: 048
     Dates: start: 20180508, end: 20180508

REACTIONS (1)
  - Analgesic drug level increased [Recovered/Resolved]

NARRATIVE: CASE EVENT DATE: 20180508
